FAERS Safety Report 6492017-0 (Version None)
Quarter: 2009Q4

REPORT INFORMATION
  Report Type: 
  Country: None (occurrence: None)
  Receive Date: 20091125
  Receipt Date: 20090928
  Transmission Date: 20100525
  Serious: Yes (Other)
  Sender: FDA-Public Use
  Company Number: 2009BH014684

PATIENT
  Age: 61 Year
  Sex: Male

DRUGS (14)
  1. DIANEAL [Suspect]
     Indication: PERITONEAL DIALYSIS
     Dosage: 10.8 L; UNK; IP
     Route: 033
     Dates: start: 20060201
  2. DIANEAL [Suspect]
     Indication: PERITONEAL DIALYSIS
     Dosage: 2.5 L; UNK; IP
     Route: 033
     Dates: start: 20060201
  3. PRILOSEC [Concomitant]
  4. NORVASC [Concomitant]
  5. TESSALON [Concomitant]
  6. AMBIEN [Concomitant]
  7. VYTORIN [Concomitant]
  8. HUMALOG [Concomitant]
  9. RENAL CAPS [Concomitant]
  10. ICAR-C-PLUS [Concomitant]
  11. INSULIN [Concomitant]
  12. LORTAB [Concomitant]
  13. RENVELA [Concomitant]
  14. CALITRIOL [Concomitant]

REACTIONS (1)
  - PERITONITIS [None]
